FAERS Safety Report 10180740 (Version 2)
Quarter: 2014Q2

REPORT INFORMATION
  Report Type: Spontaneous
  Country: US (occurrence: US)
  Receive Date: 20140519
  Receipt Date: 20140519
  Transmission Date: 20141212
  Serious: No
  Sender: FDA-Public Use
  Company Number: US-AMGEN INC.-USASP2014009595

PATIENT
  Age: 90 Year
  Sex: Male
  Weight: 78.01 kg

DRUGS (9)
  1. PROLIA [Suspect]
     Indication: BONE DISORDER
     Dosage: 60 MG, Q6MO
     Route: 065
     Dates: start: 20130225, end: 20130826
  2. HYZAAR [Concomitant]
     Dosage: UNK UNK, QD
     Route: 048
  3. VITAMIN D                          /00107901/ [Concomitant]
     Dosage: 4000 IU, UNK
     Route: 065
  4. CALCIUM [Concomitant]
     Dosage: 600 + D (3) 600 MG (1500 MG)-400 UNIT TAB
     Route: 065
  5. VITAMIN B 12 [Concomitant]
     Dosage: 500 -1000 MCG
     Route: 060
  6. MAGNESIUM [Concomitant]
     Route: 065
  7. ASPIRIN [Concomitant]
     Dosage: 325 MG, QD
     Route: 048
  8. LOZENGER T [Concomitant]
  9. MULTIVITAMIN                       /00097801/ [Concomitant]
     Dosage: UNK UNK, QD
     Route: 048

REACTIONS (1)
  - Musculoskeletal pain [Recovered/Resolved]
